FAERS Safety Report 5707866-3 (Version None)
Quarter: 2008Q2

REPORT INFORMATION
  Report Type: 
  Country: None (occurrence: None)
  Receive Date: 20080414
  Receipt Date: 20080331
  Transmission Date: 20081010
  Serious: Yes (Hospitalization, Other)
  Sender: FDA-Public Use
  Company Number: 100#08#2008-01905

PATIENT
  Age: 79 Year
  Sex: Female

DRUGS (1)
  1. DICLOFENAC SODIUM [Suspect]
     Indication: ARTHRALGIA
     Dosage: INTRAMUSCULAR
     Route: 030

REACTIONS (5)
  - ANAPHYLACTIC REACTION [None]
  - ARTERIOSPASM CORONARY [None]
  - EYE SWELLING [None]
  - MYOCARDIAL INFARCTION [None]
  - WHEEZING [None]
